FAERS Safety Report 18410219 (Version 1)
Quarter: 2020Q4

REPORT INFORMATION
  Report Type: Spontaneous
  Country: US (occurrence: US)
  Receive Date: 20201021
  Receipt Date: 20201021
  Transmission Date: 20210114
  Serious: Yes (Hospitalization)
  Sender: FDA-Public Use
  Company Number: None

PATIENT
  Sex: Male
  Weight: 62.5 kg

DRUGS (4)
  1. ONCASPAR [Concomitant]
     Active Substance: PEGASPARGASE
  2. DAUNORUBICIN [Concomitant]
     Active Substance: DAUNORUBICIN
  3. PREDNISONE. [Suspect]
     Active Substance: PREDNISONE
  4. VINCRISTINE SULFATE. [Concomitant]
     Active Substance: VINCRISTINE SULFATE

REACTIONS (9)
  - Oxygen saturation decreased [None]
  - Respiratory failure [None]
  - Pneumonia [None]
  - Haematemesis [None]
  - Pulmonary haemorrhage [None]
  - Duodenitis [None]
  - Haemoglobin decreased [None]
  - Duodenal ulcer [None]
  - Thrombosis [None]

NARRATIVE: CASE EVENT DATE: 20201013
